FAERS Safety Report 8955744 (Version 1)
Quarter: 2012Q4

REPORT INFORMATION
  Report Type: 
  Country: US (occurrence: US)
  Receive Date: 20121210
  Receipt Date: 20121210
  Transmission Date: 20130627
  Serious: Yes (Hospitalization)
  Sender: FDA-Public Use
  Company Number: US-B.I. PHARMACEUTICALS,INC./RIDGEFIELD-2012-BI-02286BP

PATIENT
  Age: 75 Year
  Sex: Female
  Weight: 82 kg

DRUGS (3)
  1. PRADAXA [Suspect]
     Dosage: 300 mg
     Route: 048
     Dates: start: 20121121, end: 20121121
  2. XARELTO [Suspect]
     Route: 048
     Dates: start: 20121121, end: 20121121
  3. XARELTO [Concomitant]
     Route: 048
     Dates: start: 20121121, end: 20121121

REACTIONS (4)
  - Stevens-Johnson syndrome [Recovered/Resolved]
  - Rash generalised [Not Recovered/Not Resolved]
  - Pruritus [Not Recovered/Not Resolved]
  - Thrombosis [Not Recovered/Not Resolved]
